FAERS Safety Report 17007392 (Version 1)
Quarter: 2019Q4

REPORT INFORMATION
  Report Type: Other
  Country: GB (occurrence: GB)
  Receive Date: 20191108
  Receipt Date: 20191108
  Transmission Date: 20200122
  Serious: No
  Sender: FDA-Public Use
  Company Number: GB-LUPIN PHARMACEUTICALS INC.-2019-00726

PATIENT
  Age: 8 Year
  Sex: Male
  Weight: 16 kg

DRUGS (7)
  1. PERMETHRIN. [Concomitant]
     Active Substance: PERMETHRIN
     Indication: ILL-DEFINED DISORDER
     Dosage: UNK UNK, PRN
     Route: 065
     Dates: start: 20181126, end: 20181210
  2. CLARITHROMYCIN. [Suspect]
     Active Substance: CLARITHROMYCIN
     Indication: PRODUCT USED FOR UNKNOWN INDICATION
     Dosage: UNK
     Route: 065
     Dates: start: 20190110
  3. LANSOPRAZOLE. [Suspect]
     Active Substance: LANSOPRAZOLE
     Indication: PRODUCT USED FOR UNKNOWN INDICATION
     Dosage: UNK
     Route: 065
     Dates: start: 20190110
  4. WHITE SOFT PARAFFIN [Concomitant]
     Active Substance: PARAFFIN
     Indication: ILL-DEFINED DISORDER
     Dosage: UNK UNK, PRN
     Route: 065
     Dates: start: 20181217, end: 20190114
  5. AMOXICILLIN. [Suspect]
     Active Substance: AMOXICILLIN
     Dosage: UNK
     Route: 065
     Dates: start: 20190110
  6. HYDROCORTISONE. [Concomitant]
     Active Substance: HYDROCORTISONE
     Indication: ILL-DEFINED DISORDER
     Dosage: UNK UNK, BID, APPLY TWICE DAILY FOR ONE WEEK THEN STOP
     Route: 065
     Dates: start: 20181217, end: 20181231
  7. CLARITHROMYCIN. [Concomitant]
     Active Substance: CLARITHROMYCIN
     Indication: ILL-DEFINED DISORDER
     Dosage: UNK UNK, BID, 1X5ML SPOON EVERY 12 HRS
     Route: 065
     Dates: start: 20190112

REACTIONS (2)
  - Malaise [Unknown]
  - Headache [Recovered/Resolved]

NARRATIVE: CASE EVENT DATE: 20190110
